FAERS Safety Report 7608457-X (Version None)
Quarter: 2011Q3

REPORT INFORMATION
  Report Type: 
  Country: None (occurrence: None)
  Receive Date: 20110713
  Receipt Date: 20110713
  Transmission Date: 20111222
  Serious: No
  Sender: FDA-Public Use
  Company Number: None

PATIENT
  Sex: Male

DRUGS (1)
  1. COPAXONE [Suspect]
     Dosage: 20 MG/ML SC  INJECT 20MG SUBCUTANEOUSLY EVERY NIGHT AT BEDTIME
     Route: 058

REACTIONS (2)
  - PANIC ATTACK [None]
  - EPINEPHRINE INCREASED [None]
